FAERS Safety Report 20085954 (Version 1)
Quarter: 2021Q4

REPORT INFORMATION
  Report Type: Spontaneous
  Country: CN (occurrence: None)
  Receive Date: 20211118
  Receipt Date: 20211118
  Transmission Date: 20220303
  Serious: Yes (Hospitalization)
  Sender: FDA-Public Use
  Company Number: 2021A807239

PATIENT
  Age: 92 Year
  Sex: Male
  Weight: 60 kg

DRUGS (3)
  1. SAXAGLIPTIN [Suspect]
     Active Substance: SAXAGLIPTIN
     Indication: Arthralgia
     Route: 048
     Dates: start: 20211012, end: 20211012
  2. OXIRACETAM [Concomitant]
     Active Substance: OXIRACETAM
     Indication: Cerebral disorder
     Route: 048
     Dates: start: 20211012, end: 20211012
  3. FLURBIPROFEN CATAPLASMS [Concomitant]

REACTIONS (6)
  - Myocardial ischaemia [Unknown]
  - Nausea [Unknown]
  - Dizziness [Unknown]
  - Vomiting [Unknown]
  - Pruritus [Recovered/Resolved]
  - Erythema [Unknown]

NARRATIVE: CASE EVENT DATE: 20211013
